FAERS Safety Report 11789478 (Version 1)
Quarter: 2015Q4

REPORT INFORMATION
  Report Type: Spontaneous
  Country: US (occurrence: None)
  Receive Date: 20151130
  Receipt Date: 20151130
  Transmission Date: 20160305
  Serious: Yes (Hospitalization)
  Sender: FDA-Public Use
  Company Number: None

PATIENT
  Age: 14 Year
  Sex: Female

DRUGS (1)
  1. HUMIRA [Suspect]
     Active Substance: ADALIMUMAB
     Indication: PSORIATIC ARTHROPATHY
     Route: 058
     Dates: start: 20151105, end: 20151120

REACTIONS (5)
  - Ear infection [None]
  - Dyspnoea [None]
  - Pharyngitis streptococcal [None]
  - Therapy cessation [None]
  - Pyrexia [None]

NARRATIVE: CASE EVENT DATE: 20151120
